FAERS Safety Report 5463384-1 (Version None)
Quarter: 2007Q3

REPORT INFORMATION
  Report Type: 
  Country: None (occurrence: None)
  Receive Date: 20070920
  Receipt Date: 20070911
  Transmission Date: 20080115
  Serious: Yes (Other)
  Sender: FDA-Public Use
  Company Number: GB-ASTRAZENECA-2007GB01872

PATIENT
  Sex: Male

DRUGS (7)
  1. LISINOPRIL [Suspect]
     Route: 048
     Dates: start: 20061027, end: 20070731
  2. ASPIRIN [Concomitant]
     Route: 048
  3. BISOPROLOL [Concomitant]
     Route: 048
  4. CIMETIDINE [Concomitant]
     Route: 048
  5. CLOPIDOGREL [Concomitant]
     Route: 048
  6. SIMVASTATIN [Concomitant]
     Route: 048
  7. SPIRONOLACTONE [Concomitant]
     Route: 048

REACTIONS (2)
  - PROCTALGIA [None]
  - PSORIASIS [None]
